FAERS Safety Report 14243550 (Version 1)
Quarter: 2017Q4

REPORT INFORMATION
  Report Type: Spontaneous
  Country: US (occurrence: US)
  Receive Date: 20171201
  Receipt Date: 20171201
  Transmission Date: 20180321
  Serious: No
  Sender: FDA-Public Use
  Company Number: US-ASTRAZENECA-2017SF19174

PATIENT
  Age: 52 Year
  Sex: Male
  Weight: 100.7 kg

DRUGS (1)
  1. BYDUREON [Suspect]
     Active Substance: EXENATIDE
     Indication: DIABETES MELLITUS
     Route: 058
     Dates: start: 201707

REACTIONS (6)
  - Injection site mass [Unknown]
  - Flushing [Unknown]
  - Hyperhidrosis [Unknown]
  - Nervousness [Unknown]
  - Intentional product misuse [Unknown]
  - Nasopharyngitis [Unknown]
